FAERS Safety Report 5828666-X (Version None)
Quarter: 2008Q3

REPORT INFORMATION
  Report Type: 
  Country: None (occurrence: None)
  Receive Date: 20080730
  Receipt Date: 20080730
  Transmission Date: 20090109
  Serious: Yes (Other)
  Sender: FDA-Public Use
  Company Number: None

PATIENT
  Age: 31 Year
  Sex: Female
  Weight: 65.7716 kg

DRUGS (2)
  1. GABAPENTIN [Suspect]
     Indication: PAIN
     Dosage: 2000MG OVER THE DAY TID SCHEDULE PO
     Route: 048
     Dates: start: 20080708, end: 20080729
  2. HYDROXYCHLOROQUINE SULFATE [Suspect]
     Indication: ARTHRALGIA
     Dosage: 200MG QDAY QD PO
     Route: 048
     Dates: start: 20080615, end: 20080729

REACTIONS (1)
  - TREATMENT FAILURE [None]
